FAERS Safety Report 17975264 (Version 1)
Quarter: 2020Q3

REPORT INFORMATION
  Report Type: Spontaneous
  Country: US (occurrence: US)
  Receive Date: 20200702
  Receipt Date: 20200702
  Transmission Date: 20201103
  Serious: Yes (Life-Threatening, Hospitalization, Other)
  Sender: FDA-Public Use
  Company Number: US-HIKMA PHARMACEUTICALS USA INC.-US-H14001-20-51653

PATIENT
  Age: 61 Year
  Sex: Male

DRUGS (7)
  1. METHOTREXATE. [Suspect]
     Active Substance: METHOTREXATE
     Indication: PROPHYLAXIS AGAINST GRAFT VERSUS HOST DISEASE
     Route: 065
  2. TACROLIMUS. [Suspect]
     Active Substance: TACROLIMUS
     Indication: PROPHYLAXIS AGAINST GRAFT VERSUS HOST DISEASE
     Route: 065
  3. PREDNISONE. [Suspect]
     Active Substance: PREDNISONE
     Indication: ACUTE GRAFT VERSUS HOST DISEASE IN SKIN
     Dosage: STEROID TAPER ()
  4. PENTAMIDINE [Concomitant]
     Active Substance: PENTAMIDINE
     Indication: PNEUMOCYSTIS JIROVECII PNEUMONIA
     Route: 055
  5. PREDNISONE. [Suspect]
     Active Substance: PREDNISONE
     Indication: ACUTE GRAFT VERSUS HOST DISEASE IN SKIN
     Route: 065
  6. ANTITHYMOCYTE IMMUNOGLOBULIN [Suspect]
     Active Substance: THYMOCYTE IMMUNE GLOBULIN NOS
     Indication: PROPHYLAXIS AGAINST GRAFT VERSUS HOST DISEASE
     Route: 065
  7. RUXOLITINIB [Suspect]
     Active Substance: RUXOLITINIB
     Indication: ACUTE GRAFT VERSUS HOST DISEASE IN SKIN
     Route: 065

REACTIONS (11)
  - Osteomyelitis [Unknown]
  - Thyroid gland abscess [Recovered/Resolved]
  - Staphylococcal bacteraemia [Unknown]
  - Respiratory syncytial virus infection [Unknown]
  - Myopathy [Unknown]
  - Pulmonary nocardiosis [Recovered/Resolved]
  - Infectious thyroiditis [Recovered/Resolved]
  - Staphylococcal infection [Unknown]
  - Stenotrophomonas infection [Unknown]
  - Epstein-Barr viraemia [Unknown]
  - Pulmonary necrosis [Unknown]
